FAERS Safety Report 13639801 (Version 1)
Quarter: 2017Q2

REPORT INFORMATION
  Report Type: Spontaneous
  Country: US (occurrence: US)
  Receive Date: 20170609
  Receipt Date: 20170609
  Transmission Date: 20170830
  Serious: No
  Sender: FDA-Public Use
  Company Number: US-ROCHE-1047548

PATIENT
  Sex: Female
  Weight: 5.56 kg

DRUGS (2)
  1. BELLADONNA [Concomitant]
     Active Substance: ATROPA BELLADONNA\HOMEOPATHICS
  2. KLONOPIN [Suspect]
     Active Substance: CLONAZEPAM
     Indication: EPILEPSY
     Route: 065

REACTIONS (9)
  - Insomnia [Unknown]
  - Dyskinesia [Unknown]
  - Agitation [Unknown]
  - Exaggerated startle response [Unknown]
  - Mydriasis [Unknown]
  - Restlessness [Unknown]
  - Anxiety [Unknown]
  - Crying [Unknown]
  - Panic attack [Unknown]
